FAERS Safety Report 9641065 (Version 1)
Quarter: 2013Q4

REPORT INFORMATION
  Report Type: Spontaneous
  Country: US (occurrence: US)
  Receive Date: 20131023
  Receipt Date: 20131023
  Transmission Date: 20140711
  Serious: Yes (Other)
  Sender: FDA-Public Use
  Company Number: US-ASTRAZENECA-2013SE76393

PATIENT
  Age: 69 Year
  Sex: Female
  Weight: 29 kg

DRUGS (19)
  1. PRILOSEC [Suspect]
     Indication: DUODENAL ULCER
     Dosage: DAILY
     Route: 048
     Dates: start: 1983, end: 201308
  2. PRILOSEC [Suspect]
     Indication: OESOPHAGITIS
     Dosage: DAILY
     Route: 048
     Dates: start: 1983, end: 201308
  3. PRILOSEC [Suspect]
     Indication: GASTROOESOPHAGEAL REFLUX DISEASE
     Dosage: DAILY
     Route: 048
     Dates: start: 1983, end: 201308
  4. PRILOSEC [Suspect]
     Indication: DUODENAL ULCER
     Route: 048
     Dates: start: 2012, end: 2012
  5. PRILOSEC [Suspect]
     Indication: OESOPHAGITIS
     Route: 048
     Dates: start: 2012, end: 2012
  6. PRILOSEC [Suspect]
     Indication: GASTROOESOPHAGEAL REFLUX DISEASE
     Route: 048
     Dates: start: 2012, end: 2012
  7. PRILOSEC [Suspect]
     Indication: DUODENAL ULCER
     Route: 048
     Dates: start: 201209, end: 201209
  8. PRILOSEC [Suspect]
     Indication: OESOPHAGITIS
     Route: 048
     Dates: start: 201209, end: 201209
  9. PRILOSEC [Suspect]
     Indication: GASTROOESOPHAGEAL REFLUX DISEASE
     Route: 048
     Dates: start: 201209, end: 201209
  10. PRILOSEC [Suspect]
     Indication: DUODENAL ULCER
     Route: 048
     Dates: start: 20130910, end: 20131011
  11. PRILOSEC [Suspect]
     Indication: OESOPHAGITIS
     Route: 048
     Dates: start: 20130910, end: 20131011
  12. PRILOSEC [Suspect]
     Indication: GASTROOESOPHAGEAL REFLUX DISEASE
     Route: 048
     Dates: start: 20130910, end: 20131011
  13. OMEPRAZOLE AND BICARBONATE [Suspect]
     Indication: OESOPHAGITIS
     Route: 048
     Dates: start: 201308, end: 201309
  14. OMEPRAZOLE AND BICARBONATE [Suspect]
     Indication: GASTROOESOPHAGEAL REFLUX DISEASE
     Route: 048
     Dates: start: 201308, end: 201309
  15. TUMS [Concomitant]
     Indication: NAUSEA
     Route: 048
     Dates: start: 20131011
  16. ALLEGRA [Concomitant]
     Indication: SINUSITIS
     Route: 048
  17. LEVOTHYROXINE [Concomitant]
     Indication: THYROID DISORDER
     Route: 048
     Dates: start: 201308
  18. LEVOTHYROXINE [Concomitant]
     Indication: THYROID DISORDER
     Route: 048
     Dates: start: 2012, end: 2013
  19. LEVOTHYROXINE [Concomitant]
     Indication: THYROID DISORDER
     Route: 048
     Dates: start: 2012, end: 2013

REACTIONS (14)
  - Cerebrovascular accident [Recovered/Resolved]
  - Blood electrolytes decreased [Recovered/Resolved]
  - Blood iron decreased [Recovered/Resolved]
  - Colitis [Not Recovered/Not Resolved]
  - Hypothyroidism [Unknown]
  - Blood cholesterol increased [Not Recovered/Not Resolved]
  - Oesophagitis [Unknown]
  - Gastrooesophageal reflux disease [Unknown]
  - Nausea [Not Recovered/Not Resolved]
  - Headache [Recovered/Resolved]
  - Diarrhoea [Not Recovered/Not Resolved]
  - Constipation [Recovered/Resolved]
  - Intentional drug misuse [Not Recovered/Not Resolved]
  - Drug ineffective [Not Recovered/Not Resolved]
